FAERS Safety Report 5493435-X (Version None)
Quarter: 2007Q4

REPORT INFORMATION
  Report Type: 
  Country: None (occurrence: None)
  Receive Date: 20071022
  Receipt Date: 20071022
  Transmission Date: 20080405
  Serious: Yes (Other)
  Sender: FDA-Public Use
  Company Number: None

PATIENT
  Sex: Male
  Weight: 71.2147 kg

DRUGS (2)
  1. CELEXA [Suspect]
     Indication: DEPRESSION
     Dosage: ONCE A DAY PO
     Route: 048
     Dates: start: 20030715, end: 20041210
  2. EFFEXOR XR [Suspect]
     Indication: DEPRESSION
     Dosage: ONCE A DAY PO
     Route: 048
     Dates: start: 20051122, end: 20060905

REACTIONS (1)
  - SEXUAL DYSFUNCTION [None]
